FAERS Safety Report 19258534 (Version 2)
Quarter: 2021Q2

REPORT INFORMATION
  Report Type: Spontaneous
  Country: US (occurrence: US)
  Receive Date: 20210514
  Receipt Date: 20210527
  Transmission Date: 20210717
  Serious: Yes (Other)
  Sender: FDA-Public Use
  Company Number: US-PURDUE-USA-2021-0227323

PATIENT
  Age: 87 Year
  Sex: Male
  Weight: 65.76 kg

DRUGS (2)
  1. COLACE CLEAR [Suspect]
     Active Substance: DOCUSATE SODIUM
     Indication: FAECES HARD
  2. COLACE CLEAR [Suspect]
     Active Substance: DOCUSATE SODIUM
     Indication: CONSTIPATION
     Dosage: 1 CAPSL, DAILY
     Route: 048
     Dates: start: 20201220

REACTIONS (3)
  - Product taste abnormal [Unknown]
  - Throat irritation [Unknown]
  - Foreign body in throat [Recovered/Resolved]

NARRATIVE: CASE EVENT DATE: 20210412
